FAERS Safety Report 21926722 (Version 2)
Quarter: 2024Q2

REPORT INFORMATION
  Report Type: Report from Study
  Country: BG (occurrence: BG)
  Receive Date: 20230130
  Receipt Date: 20240604
  Transmission Date: 20240716
  Serious: Yes (Hospitalization)
  Sender: FDA-Public Use
  Company Number: BG-TEVA-2023-BG-2851350

PATIENT
  Age: 56 Year
  Sex: Female
  Weight: 78 kg

DRUGS (39)
  1. CARBOPLATIN [Suspect]
     Active Substance: CARBOPLATIN
     Indication: Non-small cell lung cancer metastatic
     Route: 065
     Dates: start: 20211214
  2. LOPERAMIDE [Concomitant]
     Active Substance: LOPERAMIDE
     Indication: Product used for unknown indication
     Route: 065
     Dates: start: 20220414, end: 20220416
  3. METHYLPREDNISOLONE [Concomitant]
     Active Substance: METHYLPREDNISOLONE
     Indication: Product used for unknown indication
     Route: 065
     Dates: start: 20220322, end: 20220324
  4. BEVACIZUMAB [Suspect]
     Active Substance: BEVACIZUMAB
     Indication: Non-small cell lung cancer metastatic
     Route: 065
     Dates: start: 20211214
  5. ATEZOLIZUMAB [Concomitant]
     Active Substance: ATEZOLIZUMAB
     Indication: Prophylaxis
     Route: 065
     Dates: start: 20220414, end: 20220416
  6. CLONIDINE HYDROCHLORIDE [Concomitant]
     Active Substance: CLONIDINE HYDROCHLORIDE
     Indication: Product used for unknown indication
     Route: 065
     Dates: start: 20220216, end: 20220216
  7. CLONIDINE HYDROCHLORIDE [Concomitant]
     Active Substance: CLONIDINE HYDROCHLORIDE
     Indication: Product used for unknown indication
     Route: 065
     Dates: start: 20230706, end: 20230706
  8. MOXONIDINE [Concomitant]
     Active Substance: MOXONIDINE
     Indication: Product used for unknown indication
     Route: 065
     Dates: start: 20230201
  9. DEXOFEN [Concomitant]
     Indication: Adverse event
     Route: 065
     Dates: start: 20220115, end: 20220205
  10. DEXOFEN [Concomitant]
     Indication: Adverse event
     Route: 065
     Dates: start: 20230307, end: 20230307
  11. DEXOFEN [Concomitant]
     Indication: Adverse event
     Route: 065
     Dates: start: 20230302, end: 20230302
  12. GENTAMICIN [Concomitant]
     Active Substance: GENTAMICIN
     Indication: Prophylaxis
     Route: 065
     Dates: start: 20220414, end: 20220416
  13. BRONCHOLYTIN [Concomitant]
     Indication: Cough
     Route: 065
     Dates: start: 20220616
  14. BROMHEXINE [Concomitant]
     Active Substance: BROMHEXINE
     Indication: Product used for unknown indication
     Route: 065
     Dates: start: 20220322, end: 20220324
  15. BISOPROLOL FUMARATE [Concomitant]
     Active Substance: BISOPROLOL FUMARATE
     Indication: Product used for unknown indication
     Route: 065
     Dates: start: 20230131
  16. BISOPROLOL FUMARATE [Concomitant]
     Active Substance: BISOPROLOL FUMARATE
     Indication: Product used for unknown indication
     Route: 065
     Dates: start: 20230201
  17. METRONIDAZOLE [Concomitant]
     Active Substance: METRONIDAZOLE
     Indication: Prophylaxis
     Route: 065
     Dates: start: 20220414, end: 20220416
  18. PACLITAXEL [Suspect]
     Active Substance: PACLITAXEL
     Indication: Non-small cell lung cancer metastatic
     Route: 065
     Dates: start: 20211214
  19. SODIUM CHLORIDE [Concomitant]
     Active Substance: SODIUM CHLORIDE
     Indication: Product used for unknown indication
     Route: 065
     Dates: start: 20220322, end: 20220324
  20. TERCEF [Concomitant]
     Indication: Prophylaxis
     Route: 065
     Dates: start: 20220414, end: 20220416
  21. ASPIRIN [Concomitant]
     Active Substance: ASPIRIN
     Indication: Product used for unknown indication
     Route: 065
  22. DEXTROSE [Concomitant]
     Active Substance: DEXTROSE\DEXTROSE MONOHYDRATE
     Indication: Prophylaxis
     Route: 065
     Dates: start: 20220414, end: 20220416
  23. DEXTROSE [Concomitant]
     Active Substance: DEXTROSE\DEXTROSE MONOHYDRATE
     Indication: Prophylaxis
     Route: 065
     Dates: start: 20220322, end: 20220324
  24. ATEZOLIZUMAB [Suspect]
     Active Substance: ATEZOLIZUMAB
     Indication: Non-small cell lung cancer metastatic
     Dosage: DOSAGE TEXT: MOST RECENT DATE OF ADMINISTRATION PRIOR TO SAE: 16/FEB/2022
     Route: 042
     Dates: start: 20211214
  25. AVANOR [Concomitant]
     Indication: Product used for unknown indication
     Route: 065
     Dates: start: 20220927
  26. VIVACE [Concomitant]
     Indication: Product used for unknown indication
     Dosage: BID
     Route: 065
     Dates: start: 20220927
  27. EZEN [Concomitant]
     Indication: Bone pain
     Dosage: DOSAGE TEXT: QD
     Route: 065
     Dates: start: 20220927
  28. PANTOPRAZOLE SODIUM [Concomitant]
     Active Substance: PANTOPRAZOLE SODIUM
     Indication: Prophylaxis
     Route: 065
     Dates: start: 20220927
  29. CLOPIDOGREL [Concomitant]
     Active Substance: CLOPIDOGREL BISULFATE
     Indication: Product used for unknown indication
     Route: 065
  30. ANAFTIN [Concomitant]
     Indication: Product used for unknown indication
     Route: 065
     Dates: start: 20211220, end: 20220204
  31. VITAMIN C [Concomitant]
     Active Substance: ASCORBIC ACID
     Indication: Product used for unknown indication
     Route: 065
     Dates: start: 20220414, end: 20220416
  32. VITAMIN C [Concomitant]
     Active Substance: ASCORBIC ACID
     Indication: Product used for unknown indication
     Route: 065
     Dates: start: 20220322, end: 20220324
  33. FAMOTIDINE [Concomitant]
     Active Substance: FAMOTIDINE
     Indication: Prophylaxis
     Route: 065
     Dates: start: 20220414, end: 20220416
  34. SOPHAFYLLIN [Concomitant]
     Indication: Product used for unknown indication
     Route: 065
     Dates: start: 20220322, end: 20220324
  35. DEXAMETHASONE [Concomitant]
     Active Substance: DEXAMETHASONE
     Indication: Prophylaxis
     Route: 065
     Dates: start: 20220322, end: 20220322
  36. DEXAMETHASONE [Concomitant]
     Active Substance: DEXAMETHASONE
     Indication: Prophylaxis
     Route: 065
     Dates: start: 20220414, end: 20220414
  37. CIPROFLOXACIN [Concomitant]
     Active Substance: CIPROFLOXACIN
     Indication: Prophylaxis
     Route: 065
     Dates: start: 20220927, end: 20221003
  38. GEROXYNAL [Concomitant]
     Indication: Adverse event
     Route: 065
     Dates: start: 20230209, end: 20230301
  39. ENTEROL [Concomitant]
     Indication: Prophylaxis
     Route: 065
     Dates: start: 20220927, end: 20221003

REACTIONS (14)
  - Dyspnoea [Not Recovered/Not Resolved]
  - Chest pain [Recovered/Resolved]
  - Oropharyngeal pain [Recovered/Resolved]
  - Bone pain [Recovered/Resolved]
  - Folliculitis [Recovered/Resolved]
  - Hypertension [Recovered/Resolved]
  - Aphthous ulcer [Recovered/Resolved]
  - Headache [Recovered/Resolved]
  - Dizziness [Recovered/Resolved]
  - Cough [Recovered/Resolved]
  - Alopecia [Not Recovered/Not Resolved]
  - Neuropathy peripheral [Recovered/Resolved]
  - Dysphagia [Recovered/Resolved]
  - Dysphonia [Recovered/Resolved]

NARRATIVE: CASE EVENT DATE: 20211220
